FAERS Safety Report 20617972 (Version 1)
Quarter: 2022Q1

REPORT INFORMATION
  Report Type: Spontaneous
  Country: FR (occurrence: FR)
  Receive Date: 20220321
  Receipt Date: 20220321
  Transmission Date: 20220423
  Serious: Yes (Hospitalization)
  Sender: FDA-Public Use
  Company Number: None

PATIENT
  Age: 90 Year
  Sex: Female
  Weight: 57.7 kg

DRUGS (11)
  1. DOMPERIDONE [Suspect]
     Active Substance: DOMPERIDONE
     Indication: Product used for unknown indication
     Dosage: 20 MG, QD (10MG 2/J)
     Route: 048
     Dates: end: 20220104
  2. FUROSEMIDE [Suspect]
     Active Substance: FUROSEMIDE
     Indication: Hypertension
     Dosage: 10 MG, QD
     Route: 048
  3. ATORVASTATIN [Suspect]
     Active Substance: ATORVASTATIN
     Indication: Product used for unknown indication
     Dosage: 10 MG, QD
     Route: 048
     Dates: end: 20220104
  4. TRAMADOL HYDROCHLORIDE [Suspect]
     Active Substance: TRAMADOL HYDROCHLORIDE
     Indication: Osteoarthritis
     Dosage: 300 MG, QD (150MG 2/J)
     Route: 048
     Dates: end: 20220104
  5. ZOFENOPRIL [Suspect]
     Active Substance: ZOFENOPRIL
     Indication: Hypertension
     Dosage: 30 MG, QD
     Route: 048
     Dates: end: 20220104
  6. ZALDIAR [Suspect]
     Active Substance: ACETAMINOPHEN\TRAMADOL HYDROCHLORIDE
     Indication: Osteoarthritis
     Dosage: 3 DOSAGE FORM, QD
     Route: 048
     Dates: end: 20220104
  7. DAFALGAN [Suspect]
     Active Substance: ACETAMINOPHEN
     Indication: Osteoarthritis
     Dosage: 1500 MG, QD (3DF/J)
     Route: 048
     Dates: end: 20220104
  8. NITRAZEPAM [Suspect]
     Active Substance: NITRAZEPAM
     Indication: Insomnia
     Dosage: 1 DOSAGE FORM, QD (BREAKABLE TABLET)
     Route: 048
     Dates: end: 20220104
  9. NEBIVOLOL HYDROCHLORIDE [Suspect]
     Active Substance: NEBIVOLOL HYDROCHLORIDE
     Indication: Hypertension
     Dosage: 5 MG, QD
     Route: 048
  10. LEVOTHYROXINE [Concomitant]
     Active Substance: LEVOTHYROXINE
     Indication: Product used for unknown indication
     Dosage: UNK
     Route: 065
  11. PANTOPRAZOLE [Concomitant]
     Active Substance: PANTOPRAZOLE
     Indication: Product used for unknown indication
     Dosage: UNK
     Route: 065

REACTIONS (2)
  - Fall [Recovered/Resolved]
  - Rhabdomyolysis [Recovered/Resolved]

NARRATIVE: CASE EVENT DATE: 20220104
